FAERS Safety Report 5118721-4 (Version None)
Quarter: 2006Q4

REPORT INFORMATION
  Report Type: 
  Country: None (occurrence: None)
  Receive Date: 20061002
  Receipt Date: 20060921
  Transmission Date: 20070319
  Serious: Yes (Hospitalization, Other)
  Sender: FDA-Public Use
  Company Number: PHEH2006US12049

PATIENT
  Age: 54 Year
  Sex: Female
  Weight: 90 kg

DRUGS (21)
  1. EXJADE [Suspect]
     Indication: BLOOD IRON INCREASED
     Dosage: 1500 MG, QD
     Route: 048
     Dates: start: 20060315, end: 20060902
  2. CELLCEPT [Concomitant]
     Indication: GRAFT VERSUS HOST DISEASE
     Dosage: 1 G, BID
  3. ZOLPIDEM TARTRATE [Concomitant]
     Dosage: 5 MG, PRN
  4. FLUTICASONE W/SALMETEROL [Concomitant]
     Dosage: 100/50 INF 1 PUFF BID
  5. CALCIUM CITRATE [Concomitant]
  6. VITAMIN D [Concomitant]
  7. PREDNISONE [Concomitant]
  8. MULTIVITAMIN [Concomitant]
  9. FOLIC ACID [Concomitant]
     Dosage: 1 G, QD
  10. METOPROLOL [Concomitant]
     Dosage: 12.5 MG, QD
  11. SENNA [Concomitant]
     Dosage: 1 UNK, QHS
  12. ALBUTEROL [Concomitant]
     Dosage: UNK, PRN
  13. TIOTROPIUM [Concomitant]
  14. OMEPRAZOLE [Concomitant]
     Dosage: 20 MG, BID
     Route: 048
  15. AMITRIPTYLINE HCL [Concomitant]
     Dosage: 25 MG, QHS
     Route: 048
  16. LORAZEPAM [Concomitant]
     Indication: INSOMNIA
     Dosage: 0.5 MG, PRN
     Route: 048
  17. INSULIN GLARGINE [Concomitant]
     Dosage: 8 UNITS SQ Q AM
  18. INSULIN [Concomitant]
     Dosage: SLIDING SCALE
  19. MORPHINE [Concomitant]
     Dosage: 15 MG, Q4H PRN
     Route: 048
  20. NYSTATIN [Concomitant]
     Dosage: 1 %, BID
     Route: 061
  21. COUMADIN [Concomitant]
     Dosage: 1 MG, QHS

REACTIONS (37)
  - ALPHA HAEMOLYTIC STREPTOCOCCAL INFECTION [None]
  - ANAEMIA [None]
  - ASPIRATION [None]
  - BACK PAIN [None]
  - BRONCHIECTASIS [None]
  - CHEST X-RAY ABNORMAL [None]
  - COMPRESSION FRACTURE [None]
  - DEEP VEIN THROMBOSIS [None]
  - DEHYDRATION [None]
  - DIABETES MELLITUS INSULIN-DEPENDENT [None]
  - DYSPHAGIA [None]
  - HYPERTENSION [None]
  - KIDNEY SMALL [None]
  - LARYNGEAL OEDEMA [None]
  - LOCAL SWELLING [None]
  - LUNG INFILTRATION [None]
  - NECROSIS [None]
  - NEUROPATHY PERIPHERAL [None]
  - ODYNOPHAGIA [None]
  - OESOPHAGEAL CANDIDIASIS [None]
  - OESOPHAGEAL OEDEMA [None]
  - OESOPHAGITIS [None]
  - OSTEONECROSIS [None]
  - OSTEOPOROSIS [None]
  - OXYGEN SUPPLEMENTATION [None]
  - PHARYNGEAL OEDEMA [None]
  - PHARYNGOLARYNGEAL PAIN [None]
  - PLEURAL EFFUSION [None]
  - PNEUMONIA [None]
  - PRODUCTIVE COUGH [None]
  - RENAL FAILURE [None]
  - RENAL TUBULAR NECROSIS [None]
  - SINUS DISORDER [None]
  - TACHYCARDIA [None]
  - THROMBOSIS [None]
  - ULTRASOUND KIDNEY ABNORMAL [None]
  - WOUND INFECTION STAPHYLOCOCCAL [None]
